FAERS Safety Report 12482816 (Version 3)
Quarter: 2016Q3

REPORT INFORMATION
  Report Type: Spontaneous
  Country: US (occurrence: US)
  Receive Date: 20160620
  Receipt Date: 20160708
  Transmission Date: 20161109
  Serious: Yes (Hospitalization)
  Sender: FDA-Public Use
  Company Number: US-ACTELION-A-US2016-137634

PATIENT
  Age: 61 Year
  Sex: Male

DRUGS (3)
  1. FLOMAX [Concomitant]
     Active Substance: TAMSULOSIN HYDROCHLORIDE
  2. OPSUMIT [Suspect]
     Active Substance: MACITENTAN
     Indication: PULMONARY ARTERIAL HYPERTENSION
     Dosage: 10 MG, UNK
     Route: 048
     Dates: start: 201605, end: 201605
  3. INSULIN [Concomitant]
     Active Substance: INSULIN NOS
     Dosage: UNK

REACTIONS (12)
  - Cardiac disorder [Unknown]
  - Radiotherapy [Recovered/Resolved]
  - Chemical burn of skin [Not Recovered/Not Resolved]
  - Hypotension [Unknown]
  - Prostatic obstruction [Recovered/Resolved]
  - Fatigue [Unknown]
  - Body tinea [Recovered/Resolved]
  - Tachycardia [Recovered/Resolved]
  - Dizziness [Unknown]
  - Papule [Not Recovered/Not Resolved]
  - Skin discolouration [Not Recovered/Not Resolved]
  - Dyspnoea [Recovering/Resolving]

NARRATIVE: CASE EVENT DATE: 201605
